FAERS Safety Report 13550705 (Version 4)
Quarter: 2017Q4

REPORT INFORMATION
  Report Type: Spontaneous
  Country: US (occurrence: US)
  Receive Date: 20170516
  Receipt Date: 20171111
  Transmission Date: 20180320
  Serious: Yes (Other)
  Sender: FDA-Public Use
  Company Number: US-SA-2017SA087694

PATIENT
  Age: 50 Year
  Sex: Female
  Weight: 64 kg

DRUGS (10)
  1. DUPIXENT [Suspect]
     Active Substance: DUPILUMAB
     Indication: DERMATITIS ATOPIC
     Dosage: FREQUENCY SQ
     Route: 058
     Dates: start: 201709
  2. DUPIXENT [Suspect]
     Active Substance: DUPILUMAB
     Indication: NEURODERMATITIS
     Dosage: FREQUENCY SQ
     Route: 058
     Dates: start: 20170428, end: 20170428
  3. DUPIXENT [Suspect]
     Active Substance: DUPILUMAB
     Indication: DERMATITIS ATOPIC
     Dosage: FREQUENCY SQ
     Route: 058
     Dates: start: 20170428, end: 20170428
  4. DUPIXENT [Suspect]
     Active Substance: DUPILUMAB
     Indication: NEURODERMATITIS
     Dosage: FREQUENCY SQ
     Route: 058
     Dates: start: 201709
  5. DUPIXENT [Suspect]
     Active Substance: DUPILUMAB
     Indication: NEURODERMATITIS
     Dosage: FREQUENCY SQ
     Route: 058
     Dates: end: 20170502
  6. DUPIXENT [Suspect]
     Active Substance: DUPILUMAB
     Indication: DERMATITIS ATOPIC
     Dosage: FREQUENCY SQ
     Route: 058
     Dates: end: 20170502
  7. CYCLOSPORINE. [Concomitant]
     Active Substance: CYCLOSPORINE
     Indication: DERMATITIS ATOPIC
     Route: 065
     Dates: start: 20161205
  8. CYCLOSPORINE. [Concomitant]
     Active Substance: CYCLOSPORINE
     Indication: PYODERMA
     Route: 065
     Dates: start: 20161205
  9. OTEZLA [Concomitant]
     Active Substance: APREMILAST
     Indication: PYODERMA
     Route: 065
     Dates: start: 20150520
  10. DOXEPIN [Concomitant]
     Active Substance: DOXEPIN
     Indication: SCRATCH
     Dosage: DOSING DETAILS: DAILY DOSE: 25 MG FREQ: EVERY NIGHT AS PER REQUIREMENT
     Route: 065
     Dates: start: 20160210

REACTIONS (7)
  - Urticaria [Recovering/Resolving]
  - Urticarial vasculitis [Not Recovered/Not Resolved]
  - Pain [Recovering/Resolving]
  - Pruritus generalised [Recovering/Resolving]
  - Hypersensitivity [Recovering/Resolving]
  - Injection site reaction [Not Recovered/Not Resolved]
  - Rash erythematous [Recovering/Resolving]

NARRATIVE: CASE EVENT DATE: 2017
